FAERS Safety Report 19125573 (Version 2)
Quarter: 2021Q2

REPORT INFORMATION
  Report Type: Report from Study
  Country: DE (occurrence: DE)
  Receive Date: 20210412
  Receipt Date: 20210416
  Transmission Date: 20210717
  Serious: Yes (Life-Threatening, Hospitalization, Other)
  Sender: FDA-Public Use
  Company Number: DE-BRISTOL-MYERS SQUIBB COMPANY-BMS-2021-016432

PATIENT
  Age: 30 Year
  Sex: Male
  Weight: 79.4 kg

DRUGS (30)
  1. METRONIDAZOLE. [Concomitant]
     Active Substance: METRONIDAZOLE
     Indication: PYREXIA
     Dosage: 1200 MILLIGRAM
     Route: 048
     Dates: start: 20210127, end: 20210204
  2. JONOSTERIL [CALCIUM CHLORIDE DIHYDRATE;POTASSIUM CHLORIDE;SODIUM LACTA [Concomitant]
     Indication: PRODUCT USED FOR UNKNOWN INDICATION
     Dosage: 1000 MILLILITER FLUID SUBSTITUTION
     Route: 042
     Dates: start: 20210119, end: 20210119
  3. CLEXANE [Concomitant]
     Active Substance: ENOXAPARIN SODIUM
     Indication: PROPHYLAXIS
     Dosage: 40MG/ 0.4ML AS NEEDED
     Route: 058
     Dates: start: 20210115, end: 20210204
  4. NOVALGIN (METAMIZOLE SODIUM) [Concomitant]
     Active Substance: METAMIZOLE SODIUM
     Indication: PAIN
     Dosage: 30 DROP, QID
     Route: 048
     Dates: start: 20210127, end: 20210131
  5. ONDANSETRON [Concomitant]
     Active Substance: ONDANSETRON
     Indication: PROPHYLAXIS
     Dosage: 8 MG S.IG.
     Route: 050
     Dates: start: 20210327, end: 20210328
  6. DASATINIB. [Suspect]
     Active Substance: DASATINIB
     Indication: ACUTE MYELOID LEUKAEMIA
     Dosage: 100 MILLIGRAM
     Route: 065
     Dates: start: 20210118, end: 20210211
  7. PEPSINWEIN [Concomitant]
     Indication: APPETITE DISORDER
     Dosage: 20 MILLILITER
     Route: 048
     Dates: start: 20210119, end: 20210124
  8. MCP [Concomitant]
     Active Substance: METOCLOPRAMIDE HYDROCHLORIDE
     Indication: PROPHYLAXIS
     Dosage: 20 MILLIGRAM
     Route: 042
     Dates: start: 20210119, end: 20210121
  9. NOVALGIN (METAMIZOLE SODIUM) [Concomitant]
     Active Substance: METAMIZOLE SODIUM
     Dosage: 1 GRAM
     Route: 042
     Dates: start: 20210402, end: 20210403
  10. NOVALGIN (METAMIZOLE SODIUM) [Concomitant]
     Active Substance: METAMIZOLE SODIUM
     Dosage: 1 GRAM, QID
     Route: 042
     Dates: start: 20210403, end: 20210404
  11. MERONEM [Concomitant]
     Active Substance: MEROPENEM
     Indication: PYREXIA
     Dosage: 3 GRAM
     Route: 042
     Dates: start: 20210129, end: 20210203
  12. DASATINIB. [Suspect]
     Active Substance: DASATINIB
     Dosage: 100 MILLIGRAM
     Route: 048
     Dates: start: 20210327, end: 20210402
  13. CYTARABINE. [Suspect]
     Active Substance: CYTARABINE
     Dosage: 5923 MILLIGRAM, BID
     Route: 042
     Dates: start: 20210324, end: 20210327
  14. PANTOZOL [Concomitant]
     Active Substance: PANTOPRAZOLE SODIUM
     Indication: PROPHYLAXIS
     Dosage: 40 MILLIGRAM
     Route: 048
     Dates: start: 20210115
  15. OLIMEL [Concomitant]
     Active Substance: AMINO ACIDS\DEXTROSE\SOYBEAN OIL
     Indication: PRODUCT USED FOR UNKNOWN INDICATION
     Dosage: 1000 MILLILITER PARENTRAL SUBSTITUTION
     Route: 042
     Dates: start: 20210119, end: 20210119
  16. MOVICOL [Concomitant]
     Active Substance: POLYETHYLENE GLYCOL 3350\POTASSIUM CHLORIDE\SODIUM BICARBONATE\SODIUM CHLORIDE
     Indication: PROPHYLAXIS
     Dosage: UNK
     Route: 048
     Dates: start: 20210326, end: 20210329
  17. FOLSAN [Concomitant]
     Active Substance: FOLIC ACID
     Indication: PROPHYLAXIS
     Dosage: 5MG, TWICE PER WEEK
     Route: 048
     Dates: start: 20210115
  18. PIRITRAMIDE [Concomitant]
     Active Substance: PIRITRAMIDE
     Indication: PAIN
     Dosage: 7.5 MILLIGRAM 5 TIMES
     Route: 058
     Dates: start: 20210403, end: 20210403
  19. PIPERACILLIN,TAZOBACTAM [Suspect]
     Active Substance: PIPERACILLIN SODIUM\TAZOBACTAM SODIUM
     Dosage: 4.5 GRAM, TID
     Route: 042
     Dates: start: 20210403, end: 20210404
  20. DEXASINE [DEXAMETHASONE] [Concomitant]
     Indication: PROPHYLAXIS
     Dosage: 3 DROPS PER EYE
     Dates: start: 20210115, end: 20210118
  21. HALDOL [Concomitant]
     Active Substance: HALOPERIDOL
     Indication: NAUSEA
     Dosage: 8 DROP
     Route: 048
     Dates: start: 20210403, end: 20210403
  22. CYTARABINE. [Suspect]
     Active Substance: CYTARABINE
     Indication: ACUTE MYELOID LEUKAEMIA
     Dosage: DAY1?3 EACH DAY 397 MG, (FIRST INFUSION IN THE EVENING AND LAST INFUSION IN THE MORNING)
     Route: 065
     Dates: start: 20210115, end: 20210118
  23. PIPERACILLIN,TAZOBACTAM [Suspect]
     Active Substance: PIPERACILLIN SODIUM\TAZOBACTAM SODIUM
     Indication: FEBRILE INFECTION
     Dosage: UNK
     Route: 065
  24. MCP [Concomitant]
     Active Substance: METOCLOPRAMIDE HYDROCHLORIDE
     Dosage: 10 MILLIGRAM, TID
     Route: 048
     Dates: start: 20210331, end: 20210401
  25. METRONIDAZOLE. [Concomitant]
     Active Substance: METRONIDAZOLE
     Dosage: 500 MILLIGRAM
     Route: 048
     Dates: start: 20210404
  26. CLEXANE [Concomitant]
     Active Substance: ENOXAPARIN SODIUM
     Dosage: 0.4 ML
     Route: 058
     Dates: start: 20210324, end: 20210331
  27. NOVALGIN (METAMIZOLE SODIUM) [Concomitant]
     Active Substance: METAMIZOLE SODIUM
     Indication: PROPHYLAXIS
     Dosage: 500 MILLIGRAM
     Route: 048
     Dates: start: 20210118, end: 20210118
  28. VANCOMYCIN [Concomitant]
     Active Substance: VANCOMYCIN
     Indication: PYREXIA
     Dosage: 500 MILLIGRAM
     Route: 048
     Dates: start: 20210129, end: 20210203
  29. CANCIDAS [Concomitant]
     Active Substance: CASPOFUNGIN ACETATE
     Indication: PYREXIA
     Dosage: 50 MILLIGRAM, QD
     Route: 042
     Dates: start: 20210404
  30. BUSCOPAN [Concomitant]
     Active Substance: BUTYLSCOPOLAMINE BROMIDE
     Indication: PAIN
     Dosage: 600 MILLIGRAM
     Route: 048
     Dates: start: 20210402, end: 20210402

REACTIONS (2)
  - Mechanical ileus [Recovered/Resolved]
  - Clostridium difficile infection [Recovered/Resolved]

NARRATIVE: CASE EVENT DATE: 20210215
